FAERS Safety Report 13663334 (Version 1)
Quarter: 2017Q2

REPORT INFORMATION
  Report Type: Spontaneous
  Country: CH (occurrence: CH)
  Receive Date: 20170619
  Receipt Date: 20170619
  Transmission Date: 20170830
  Serious: Yes (Death, Hospitalization)
  Sender: FDA-Public Use
  Company Number: CH-ROCHE-1951437

PATIENT
  Age: 68 Year
  Sex: Male

DRUGS (28)
  1. PRADIF [Concomitant]
     Active Substance: TAMSULOSIN HYDROCHLORIDE
     Route: 065
  2. NEUPOGEN [Concomitant]
     Active Substance: FILGRASTIM
     Route: 065
     Dates: start: 20170510, end: 20170512
  3. MIRABEGRON [Concomitant]
     Active Substance: MIRABEGRON
     Route: 065
     Dates: start: 20170419, end: 20170511
  4. MABTHERA [Suspect]
     Active Substance: RITUXIMAB
     Indication: NEOPLASM PROPHYLAXIS
     Route: 041
     Dates: start: 20170205, end: 20170210
  5. TAXOL [Suspect]
     Active Substance: PACLITAXEL
     Indication: METASTATIC MALIGNANT MELANOMA
     Route: 041
     Dates: start: 20170504, end: 20170504
  6. VALTREX [Concomitant]
     Active Substance: VALACYCLOVIR HYDROCHLORIDE
     Route: 065
     Dates: end: 20170511
  7. PANTOZOL (SWITZERLAND) [Concomitant]
     Active Substance: PANTOPRAZOLE SODIUM
     Route: 065
     Dates: end: 20170510
  8. PROGRAF [Suspect]
     Active Substance: TACROLIMUS\TACROLIMUS ANHYDROUS
     Indication: STEM CELL TRANSPLANT
     Dosage: LAST DOSE DATE: 08/MAY/2017
     Route: 048
     Dates: start: 20170417
  9. ZITHROMAX [Concomitant]
     Active Substance: AZITHROMYCIN DIHYDRATE
     Route: 065
  10. CALCIMAGON D3 [Concomitant]
     Active Substance: CALCIUM\CHOLECALCIFEROL
     Route: 065
  11. MAGNESIOCARD [Concomitant]
     Active Substance: MAGNESIUM ASPARTATE HYDROCHLORIDE
     Route: 065
  12. MORPHIN [Concomitant]
     Active Substance: MORPHINE
     Route: 065
     Dates: end: 20170513
  13. BULBOID [Concomitant]
     Route: 065
  14. VITAMIN D3 [Concomitant]
     Active Substance: CHOLECALCIFEROL
     Route: 065
  15. FRAGMIN [Concomitant]
     Active Substance: DALTEPARIN SODIUM
     Route: 065
  16. CELLCEPT [Suspect]
     Active Substance: MYCOPHENOLATE MOFETIL\MYCOPHENOLATE MOFETIL HYDROCHLORIDE
     Indication: STEM CELL TRANSPLANT
     Route: 048
     Dates: start: 201606, end: 20170511
  17. KEYTRUDA [Suspect]
     Active Substance: PEMBROLIZUMAB
     Indication: METASTATIC MALIGNANT MELANOMA
     Route: 041
     Dates: start: 20161128, end: 20170303
  18. PREDNISON GALEPHARM [Concomitant]
     Active Substance: PREDNISONE
     Route: 065
     Dates: end: 20170512
  19. NOXAFIL [Concomitant]
     Active Substance: POSACONAZOLE
     Route: 065
     Dates: start: 20170428, end: 20170511
  20. ELTROXIN [Concomitant]
     Active Substance: LEVOTHYROXINE
     Route: 065
     Dates: end: 20170512
  21. CISPLATIN. [Suspect]
     Active Substance: CISPLATIN
     Indication: METASTATIC MALIGNANT MELANOMA
     Route: 041
     Dates: start: 20070504, end: 20170504
  22. MACROGOL [Concomitant]
     Active Substance: POLYETHYLENE GLYCOLS
     Route: 065
  23. NOPIL [Concomitant]
     Active Substance: SULFAMETHOXAZOLE\TRIMETHOPRIM
     Route: 065
     Dates: end: 20170510
  24. PIPERACILLIN/TAZOBACTAM [Concomitant]
     Active Substance: PIPERACILLIN SODIUM\TAZOBACTAM SODIUM
     Route: 065
     Dates: start: 20170508, end: 20170513
  25. QUETIAPIN [Concomitant]
     Active Substance: QUETIAPINE
     Route: 065
     Dates: start: 20170511, end: 20170513
  26. SANDIMMUN NEORAL [Suspect]
     Active Substance: CYCLOSPORINE
     Indication: STEM CELL TRANSPLANT
     Route: 048
     Dates: start: 201606, end: 20170416
  27. DAFALGAN ODIS [Concomitant]
     Route: 065
  28. ZOVIRAX [Concomitant]
     Active Substance: ACYCLOVIR
     Route: 065
     Dates: start: 20170508, end: 20170511

REACTIONS (7)
  - Metastatic malignant melanoma [Fatal]
  - Ileus [Fatal]
  - Graft versus host disease in lung [Fatal]
  - Condition aggravated [Fatal]
  - Neutropenia [Unknown]
  - Proctitis [Unknown]
  - Faecal vomiting [Unknown]

NARRATIVE: CASE EVENT DATE: 201611
